FAERS Safety Report 5670205-0 (Version None)
Quarter: 2008Q1

REPORT INFORMATION
  Report Type: 
  Country: None (occurrence: None)
  Receive Date: 20080312
  Receipt Date: 20080227
  Transmission Date: 20080703
  Serious: Yes (Hospitalization)
  Sender: FDA-Public Use
  Company Number: 6041106

PATIENT
  Age: 79 Year
  Sex: Female

DRUGS (6)
  1. EMCONCOR                 (BISOPROLOL FUMARATE) [Suspect]
     Indication: DRUG USE FOR UNKNOWN INDICATION
     Dosage: ORAL
     Route: 048
     Dates: end: 20070903
  2. SEGURIL (40 MG, TABLET), (FUROSEMIDE) [Suspect]
     Indication: CHRONIC HEPATITIS
     Dosage: 80 MG (40 MG, 2 IN 1 D) ORAL
     Route: 048
     Dates: start: 20070820, end: 20070903
  3. ALDACTONE (100 MG, TABLET) (SPIRONOLACTONE) [Suspect]
     Indication: CHRONIC HEPATITIS
     Dosage: ORAL
     Route: 048
     Dates: start: 20070820, end: 20070903
  4. OMEPRAZOLE (20 MG) (OMEPRAZOLE) [Concomitant]
  5. COZAAR (50 MG, TABLET) (LOSARTAN POTASSIUM) [Concomitant]
  6. SERTRALINE (20 MG) (SERTRALINE) [Concomitant]

REACTIONS (2)
  - HYPERKALAEMIA [None]
  - RENAL FAILURE ACUTE [None]
